FAERS Safety Report 6000474-9 (Version None)
Quarter: 2008Q4

REPORT INFORMATION
  Report Type: 
  Country: None (occurrence: None)
  Receive Date: 20081212
  Receipt Date: 20071109
  Transmission Date: 20090506
  Serious: Yes (Other)
  Sender: FDA-Public Use
  Company Number: 17857

PATIENT
  Sex: Male

DRUGS (3)
  1. PENTOSTATIN [Suspect]
     Indication: DRUG USE FOR UNKNOWN INDICATION
  2. CYCLOPHOSPHAMIDE [Concomitant]
  3. RITUXIMAB [Concomitant]

REACTIONS (1)
  - GRAND MAL CONVULSION [None]
